FAERS Safety Report 5320378-4 (Version None)
Quarter: 2007Q2

REPORT INFORMATION
  Report Type: 
  Country: None (occurrence: None)
  Receive Date: 20070509
  Receipt Date: 20070507
  Transmission Date: 20071010
  Serious: Yes (Hospitalization)
  Sender: FDA-Public Use
  Company Number: FR-ROCHE-453784

PATIENT
  Age: 67 Year
  Sex: Female
  Weight: 53.5 kg

DRUGS (2)
  1. PLACEBO [Suspect]
     Indication: OSTEOPOROSIS POSTMENOPAUSAL
     Route: 048
     Dates: start: 20050705
  2. ALENDRONIC ACID [Suspect]
     Indication: OSTEOPOROSIS POSTMENOPAUSAL
     Route: 048
     Dates: start: 20050705

REACTIONS (2)
  - CANDIDIASIS [None]
  - INTESTINAL HAEMORRHAGE [None]
